FAERS Safety Report 22364292 (Version 1)
Quarter: 2023Q2

REPORT INFORMATION
  Report Type: Spontaneous
  Country: US (occurrence: US)
  Receive Date: 20230525
  Receipt Date: 20230525
  Transmission Date: 20230721
  Serious: No
  Sender: FDA-Public Use
  Company Number: US-UCBSA-2022071264

PATIENT
  Sex: Female
  Weight: 140 kg

DRUGS (2)
  1. CIMZIA [Suspect]
     Active Substance: CERTOLIZUMAB PEGOL
     Indication: Product used for unknown indication
  2. DUPILUMAB [Suspect]
     Active Substance: DUPILUMAB
     Indication: Product used for unknown indication

REACTIONS (6)
  - Inflammation of wound [Not Recovered/Not Resolved]
  - Asthma [Unknown]
  - Feeling abnormal [Unknown]
  - Wound [Unknown]
  - Malaise [Unknown]
  - Infection [Unknown]
